FAERS Safety Report 23828137 (Version 1)
Quarter: 2024Q2

REPORT INFORMATION
  Report Type: Spontaneous
  Country: PL (occurrence: PL)
  Receive Date: 20240507
  Receipt Date: 20240507
  Transmission Date: 20240716
  Serious: Yes (Other)
  Sender: FDA-Public Use
  Company Number: PL-002147023-NVSC2024PL096329

PATIENT
  Age: 80 Year
  Sex: Female

DRUGS (3)
  1. INCLISIRAN [Suspect]
     Active Substance: INCLISIRAN
     Indication: Product used for unknown indication
     Dosage: UNK
     Route: 065
     Dates: start: 20230618
  2. INCLISIRAN [Suspect]
     Active Substance: INCLISIRAN
     Dosage: UNK
     Route: 065
     Dates: start: 20231017
  3. INCLISIRAN [Suspect]
     Active Substance: INCLISIRAN
     Dosage: UNK
     Route: 065
     Dates: start: 20240417

REACTIONS (3)
  - Renal impairment [Recovering/Resolving]
  - Laboratory test abnormal [Recovering/Resolving]
  - Administration site pain [Recovering/Resolving]
